FAERS Safety Report 13797231 (Version 2)
Quarter: 2017Q4

REPORT INFORMATION
  Report Type: Spontaneous
  Country: US (occurrence: US)
  Receive Date: 20170727
  Receipt Date: 20171218
  Transmission Date: 20180320
  Serious: No
  Sender: FDA-Public Use
  Company Number: US-BIOGEN-2017BI00435022

PATIENT
  Age: 44 Year
  Sex: Male

DRUGS (1)
  1. AVONEX [Suspect]
     Active Substance: INTERFERON BETA-1A
     Indication: MULTIPLE SCLEROSIS
     Route: 030
     Dates: start: 201706

REACTIONS (16)
  - Rib fracture [Recovered/Resolved]
  - Abdominal pain [Not Recovered/Not Resolved]
  - Pain in extremity [Not Recovered/Not Resolved]
  - Mental impairment [Recovered/Resolved]
  - Pain [Not Recovered/Not Resolved]
  - Amnesia [Not Recovered/Not Resolved]
  - Head injury [Recovered/Resolved]
  - Confusional state [Not Recovered/Not Resolved]
  - Speech disorder [Not Recovered/Not Resolved]
  - Balance disorder [Not Recovered/Not Resolved]
  - Mood swings [Not Recovered/Not Resolved]
  - Tremor [Not Recovered/Not Resolved]
  - Feeling cold [Not Recovered/Not Resolved]
  - Stress [Not Recovered/Not Resolved]
  - Frustration tolerance decreased [Unknown]
  - Crying [Not Recovered/Not Resolved]

NARRATIVE: CASE EVENT DATE: 201709
